FAERS Safety Report 7168024-1 (Version None)
Quarter: 2010Q4

REPORT INFORMATION
  Report Type: 
  Country: None (occurrence: None)
  Receive Date: 20101216
  Receipt Date: 20101130
  Transmission Date: 20110411
  Serious: No
  Sender: FDA-Public Use
  Company Number: US-B.I. PHARMACEUTICALS,INC./RIDGEFIELD-2010-BP-13526BP

PATIENT
  Age: 77 Year
  Sex: Female

DRUGS (6)
  1. PRADAXA [Suspect]
     Indication: ATRIAL FIBRILLATION
     Dosage: 300 MG
     Route: 048
     Dates: start: 20101124, end: 20101128
  2. TOPROL-XL [Concomitant]
     Indication: HYPERTENSION
     Dosage: 25 MG
  3. SYNTHROID [Concomitant]
     Indication: HYPOTHYROIDISM
  4. TAMICUR [Concomitant]
     Indication: ATRIAL FIBRILLATION
  5. LANOXIN [Concomitant]
     Indication: ATRIAL FIBRILLATION
  6. SIMVASTATIN [Concomitant]
     Indication: BLOOD CHOLESTEROL INCREASED
     Dosage: 20 MG

REACTIONS (7)
  - BLOOD PRESSURE INCREASED [None]
  - DYSPEPSIA [None]
  - GINGIVAL BLEEDING [None]
  - HEART RATE INCREASED [None]
  - HYPERHIDROSIS [None]
  - PAIN [None]
  - TREMOR [None]
